FAERS Safety Report 7493234-3 (Version None)
Quarter: 2011Q2

REPORT INFORMATION
  Report Type: 
  Country: None (occurrence: None)
  Receive Date: 20110520
  Receipt Date: 20110303
  Transmission Date: 20111010
  Serious: Yes (Death, Hospitalization)
  Sender: FDA-Public Use
  Company Number: SG-BAYER-2011-020838

PATIENT
  Age: 58 Year
  Sex: Male
  Weight: 48 kg

DRUGS (6)
  1. UREA [Concomitant]
     Indication: RASH ERYTHEMATOUS
  2. SORAFENIB (RAF KINASE INHIBITOR) [Suspect]
     Indication: HEPATIC NEOPLASM MALIGNANT
     Dosage: 200 MG, QD
     Route: 048
     Dates: start: 20101230, end: 20110205
  3. HYDROCORTISONE [Concomitant]
     Indication: RASH ERYTHEMATOUS
  4. HYDROCORTISONE [Concomitant]
     Indication: PALMAR-PLANTAR ERYTHRODYSAESTHESIA SYNDROME
     Dosage: 1 DF, BID
     Route: 061
     Dates: start: 20110106
  5. AMLODIPINE [Concomitant]
     Indication: HYPERTENSION
     Dosage: 5 MG, QD
     Dates: start: 20110106
  6. UREA [Concomitant]
     Indication: PALMAR-PLANTAR ERYTHRODYSAESTHESIA SYNDROME
     Dosage: 1 DF, BID
     Route: 061
     Dates: start: 20110106

REACTIONS (6)
  - ORGAN FAILURE [None]
  - DIARRHOEA [None]
  - DEHYDRATION [None]
  - DYSPNOEA [None]
  - RENAL FAILURE [None]
  - VOMITING [None]
